FAERS Safety Report 18935836 (Version 2)
Quarter: 2021Q1

REPORT INFORMATION
  Report Type: Spontaneous
  Country: GB (occurrence: GB)
  Receive Date: 20210225
  Receipt Date: 20210324
  Transmission Date: 20210420
  Serious: Yes (Other)
  Sender: FDA-Public Use
  Company Number: GB-AUROBINDO-AUR-APL-2021-007568

PATIENT
  Age: 28 Year
  Sex: Female
  Weight: 95.25 kg

DRUGS (1)
  1. NAPROXEN. [Suspect]
     Active Substance: NAPROXEN
     Indication: ILL-DEFINED DISORDER
     Dosage: UNK
     Route: 048

REACTIONS (4)
  - Contusion [Recovered/Resolved]
  - Pain in extremity [Recovered/Resolved]
  - Adverse drug reaction [Recovered/Resolved]
  - Limb discomfort [Recovered/Resolved]
